FAERS Safety Report 8014101-2 (Version None)
Quarter: 2011Q4

REPORT INFORMATION
  Report Type: 
  Country: None (occurrence: None)
  Receive Date: 20111229
  Receipt Date: 20111220
  Transmission Date: 20120403
  Serious: Yes (Death, Hospitalization, Other)
  Sender: FDA-Public Use
  Company Number: US-MPIJNJ-2011-06046

PATIENT
  Age: 72 Year
  Sex: Female
  Weight: 63.039 kg

DRUGS (1)
  1. VELCADE [Suspect]
     Indication: MULTIPLE MYELOMA
     Dosage: 2.5 MG, CYCLIC
     Route: 042

REACTIONS (7)
  - CLOSTRIDIAL INFECTION [None]
  - PORTAL VEIN THROMBOSIS [None]
  - IRON DEFICIENCY [None]
  - OCCULT BLOOD POSITIVE [None]
  - DEATH [None]
  - COLITIS [None]
  - DIARRHOEA [None]
